FAERS Safety Report 7535866-X (Version None)
Quarter: 2011Q2

REPORT INFORMATION
  Report Type: 
  Country: None (occurrence: None)
  Receive Date: 20110607
  Receipt Date: 20110607
  Transmission Date: 20111010
  Serious: Yes (Death)
  Sender: FDA-Public Use
  Company Number: None

PATIENT
  Sex: Male
  Weight: 86.1834 kg

DRUGS (1)
  1. BUPROPION HCL [Suspect]
     Indication: SMOKING CESSATION THERAPY
     Dosage: 2 DAILY
     Dates: start: 20100401, end: 20100401

REACTIONS (10)
  - TREMOR [None]
  - CONFUSIONAL STATE [None]
  - DISORIENTATION [None]
  - CHILLS [None]
  - PERIPHERAL COLDNESS [None]
  - HYPERHIDROSIS [None]
  - PALLOR [None]
  - FEELING ABNORMAL [None]
  - ANXIETY [None]
  - GUN SHOT WOUND [None]
